FAERS Safety Report 17282498 (Version 1)
Quarter: 2020Q1

REPORT INFORMATION
  Report Type: Spontaneous
  Country: US (occurrence: US)
  Receive Date: 20200117
  Receipt Date: 20200117
  Transmission Date: 20200409
  Serious: Yes (Other)
  Sender: FDA-Public Use
  Company Number: US-AMGEN-USASP2020006699

PATIENT
  Age: 33 Year
  Sex: Female
  Weight: 86 kg

DRUGS (5)
  1. DARBEPOETIN ALFA [Suspect]
     Active Substance: DARBEPOETIN ALFA
     Dosage: 4.5 MICROGRAM/KILOGRAM, Q3WK
     Route: 058
  2. BLEOMYCIN [Concomitant]
     Active Substance: BLEOMYCIN SULFATE
  3. ETOPOSIDE. [Concomitant]
     Active Substance: ETOPOSIDE
  4. CISPLATIN. [Concomitant]
     Active Substance: CISPLATIN
  5. DARBEPOETIN ALFA [Suspect]
     Active Substance: DARBEPOETIN ALFA
     Indication: ANAEMIA
     Dosage: 6.75 MICROGRAM/KILOGRAM
     Route: 058

REACTIONS (1)
  - Therapy non-responder [Unknown]
